FAERS Safety Report 21056490 (Version 5)
Quarter: 2022Q3

REPORT INFORMATION
  Report Type: Report from Study
  Country: CA (occurrence: CA)
  Receive Date: 20220708
  Receipt Date: 20220921
  Transmission Date: 20221027
  Serious: Yes (Hospitalization, Other)
  Sender: FDA-Public Use
  Company Number: CA-NOVARTISPH-NVSC2022CA039460

PATIENT
  Age: 67 Year
  Sex: Female

DRUGS (8)
  1. TAFINLAR [Suspect]
     Active Substance: DABRAFENIB MESYLATE
     Indication: Malignant melanoma
     Dosage: 150 MG BID, CAPSULE
     Route: 048
     Dates: start: 20220211, end: 20220325
  2. TAFINLAR [Suspect]
     Active Substance: DABRAFENIB MESYLATE
     Dosage: 150 MG BID, CAPSULE
     Route: 048
     Dates: start: 20220211, end: 202207
  3. TAFINLAR [Suspect]
     Active Substance: DABRAFENIB MESYLATE
     Dosage: 100 MG, BID CAPSULE
     Route: 048
     Dates: start: 20220831
  4. MEKINIST [Suspect]
     Active Substance: TRAMETINIB DIMETHYL SULFOXIDE
     Indication: Malignant melanoma
     Dosage: 2 MG QD, TABLET
     Route: 048
     Dates: start: 20220211, end: 20220325
  5. MEKINIST [Suspect]
     Active Substance: TRAMETINIB DIMETHYL SULFOXIDE
     Dosage: 2 MG QD, TABLET
     Route: 048
     Dates: start: 20220211, end: 202207
  6. MEKINIST [Suspect]
     Active Substance: TRAMETINIB DIMETHYL SULFOXIDE
     Dosage: 1.5 MG QD, TABLET
     Route: 048
     Dates: start: 20220831
  7. METFORMIN [Concomitant]
     Active Substance: METFORMIN HYDROCHLORIDE
     Indication: Blood glucose abnormal
     Dosage: UNK
     Route: 065
  8. GLICLAZIDE [Concomitant]
     Active Substance: GLICLAZIDE
     Indication: Blood glucose abnormal
     Dosage: UNK
     Route: 065

REACTIONS (30)
  - Viral infection [Recovered/Resolved]
  - Nausea [Unknown]
  - Diarrhoea [Unknown]
  - Feeling abnormal [Unknown]
  - Lethargy [Recovering/Resolving]
  - Delirium [Recovering/Resolving]
  - Body temperature increased [Unknown]
  - Feeling of body temperature change [Recovering/Resolving]
  - Chills [Unknown]
  - Decreased appetite [Recovering/Resolving]
  - Intestinal sepsis [Unknown]
  - Ventricular dyssynchrony [Unknown]
  - Acne [Not Recovered/Not Resolved]
  - Flushing [Recovered/Resolved]
  - Fatigue [Not Recovered/Not Resolved]
  - Chills [Recovered/Resolved]
  - Pruritus [Not Recovered/Not Resolved]
  - Hepatic enzyme abnormal [Unknown]
  - Hypoaesthesia [Unknown]
  - Product dose omission issue [Unknown]
  - Gait disturbance [Unknown]
  - Paraesthesia [Unknown]
  - Tachycardia [Unknown]
  - Back pain [Unknown]
  - Heat stroke [Unknown]
  - Eyelid ptosis [Unknown]
  - Diplopia [Not Recovered/Not Resolved]
  - Vitreous floaters [Not Recovered/Not Resolved]
  - Vision blurred [Not Recovered/Not Resolved]
  - Pain in extremity [Unknown]

NARRATIVE: CASE EVENT DATE: 20220211
